FAERS Safety Report 4306939-X (Version None)
Quarter: 2004Q1

REPORT INFORMATION
  Report Type: 
  Country: None (occurrence: None)
  Receive Date: 20040227
  Receipt Date: 20021014
  Transmission Date: 20041129
  Serious: Yes (Hospitalization)
  Sender: FDA-Public Use
  Company Number: WAES 0210USA01487

PATIENT
  Age: 71 Year
  Sex: Male
  Weight: 60 kg

DRUGS (15)
  1. VICODIN [Concomitant]
     Indication: PAIN
  2. ASPIRIN [Concomitant]
     Indication: PROPHYLAXIS
     Route: 048
     Dates: start: 19980105
  3. LIPITOR [Concomitant]
     Route: 048
     Dates: start: 20000101
  4. PLAVIX [Concomitant]
     Indication: MYOCARDIAL INFARCTION
     Route: 048
     Dates: start: 20000804, end: 20000913
  5. PLAVIX [Concomitant]
     Route: 048
     Dates: start: 20000901
  6. PLAVIX [Concomitant]
     Indication: CARDIAC OPERATION
     Route: 048
     Dates: start: 20000804, end: 20000913
  7. PLAVIX [Concomitant]
     Route: 048
     Dates: start: 20000901
  8. COLACE [Concomitant]
  9. PREVACID [Concomitant]
  10. SYNTHROID [Concomitant]
  11. PRINIVIL [Concomitant]
     Indication: HYPERTENSION
     Route: 048
     Dates: start: 19990601, end: 20020510
  12. ZESTRIL [Concomitant]
  13. VIOXX [Suspect]
     Indication: POST PROCEDURAL PAIN
     Route: 048
     Dates: start: 20000923, end: 20001001
  14. VIOXX [Suspect]
     Indication: MUSCULOSKELETAL CHEST PAIN
     Route: 048
     Dates: start: 20000923, end: 20001001
  15. FLOMAX [Concomitant]

REACTIONS (17)
  - ACTIVATED PARTIAL THROMBOPLASTIN TIME PROLONGED [None]
  - ANGINA UNSTABLE [None]
  - AORTIC ATHEROSCLEROSIS [None]
  - CONGESTIVE CARDIOMYOPATHY [None]
  - CORONARY ARTERY DISEASE [None]
  - CORONARY ARTERY RESTENOSIS [None]
  - DILATATION ATRIAL [None]
  - DILATATION VENTRICULAR [None]
  - DIZZINESS [None]
  - ELECTROCARDIOGRAM ST SEGMENT ELEVATION [None]
  - HYPERTENSION [None]
  - HYPOTENSION [None]
  - MITRAL VALVE INCOMPETENCE [None]
  - MUSCULOSKELETAL DISCOMFORT [None]
  - MYOCARDIAL INFARCTION [None]
  - PULMONARY EMBOLISM [None]
  - SICK SINUS SYNDROME [None]
